FAERS Safety Report 8905491 (Version 1)
Quarter: 2012Q4

REPORT INFORMATION
  Report Type: 
  Country: DE (occurrence: DE)
  Receive Date: 20121111
  Receipt Date: 20121111
  Transmission Date: 20130627
  Serious: Yes (Hospitalization)
  Sender: FDA-Public Use
  Company Number: PHHO2012DE004763

PATIENT
  Age: 74 Year
  Sex: Male
  Weight: 69 kg

DRUGS (10)
  1. BLINDED NO TREATMENT RECEIVED [Suspect]
     Indication: CHRONIC OBSTRUCTIVE PULMONARY DISEASE
     Dosage: Code not broken
     Dates: start: 20120203, end: 20120315
  2. BLINDED PLACEBO [Suspect]
     Indication: CHRONIC OBSTRUCTIVE PULMONARY DISEASE
     Dosage: Code not broken
     Dates: start: 20120203, end: 20120315
  3. QVA149 [Suspect]
     Indication: CHRONIC OBSTRUCTIVE PULMONARY DISEASE
     Dosage: Code not broken
     Dates: start: 20120203, end: 20120315
  4. TIOTROPIUM [Suspect]
     Indication: CHRONIC OBSTRUCTIVE PULMONARY DISEASE
     Dosage: Code not broken
     Dates: start: 20120203, end: 20120315
  5. SALBUTAMOL [Concomitant]
     Indication: CHRONIC OBSTRUCTIVE PULMONARY DISEASE
     Dosage: 100 ug, PRN
     Dates: start: 20120105, end: 20120315
  6. ALLOPURINOL [Concomitant]
     Indication: GOUT
     Dosage: 300 mg, intermittent
     Route: 048
  7. ASS [Concomitant]
     Indication: PROPHYLAXIS
     Dosage: 100 mg, QD
     Route: 048
  8. SPIRIVA [Concomitant]
     Indication: CHRONIC OBSTRUCTIVE PULMONARY DISEASE
     Dosage: 2.5 ug, BID
     Dates: start: 20120316
  9. RAMIPRIL [Concomitant]
     Indication: HYPERTENSION
     Dosage: 2.5 mg, BID
     Route: 048
     Dates: start: 20120318
  10. PANTOPRAZOLE [Concomitant]
     Indication: GASTRITIS PROPHYLAXIS
     Dosage: 20 mg, QD
     Route: 048
     Dates: start: 20120319

REACTIONS (1)
  - Ischaemic stroke [Recovering/Resolving]
